FAERS Safety Report 8033246-4 (Version None)
Quarter: 2012Q1

REPORT INFORMATION
  Report Type: 
  Country: None (occurrence: None)
  Receive Date: 20120110
  Receipt Date: 20120103
  Transmission Date: 20120608
  Serious: Yes (Death, Hospitalization)
  Sender: FDA-Public Use
  Company Number: FR-MILLENNIUM PHARMACEUTICALS, INC.-2011-03800

PATIENT

DRUGS (5)
  1. VELCADE [Suspect]
     Indication: MULTIPLE MYELOMA
     Dosage: 0.7 MG/M2, UNK
     Route: 042
     Dates: start: 20110808, end: 20110808
  2. DURAGESIC-100 [Concomitant]
     Indication: BONE PAIN
     Dosage: 75 MG, UNK
     Dates: start: 20100404, end: 20110815
  3. BENDAMUSTINE [Suspect]
     Indication: MULTIPLE MYELOMA
     Dosage: 70 MG/M2, UNK
     Route: 042
     Dates: start: 20010808, end: 20110808
  4. LYTOS [Concomitant]
     Dosage: 520 MG, UNK
     Route: 048
     Dates: start: 20090307, end: 20110815
  5. DEXAMETHASONE [Suspect]
     Indication: MULTIPLE MYELOMA
     Dosage: 20 MG, UNK
     Route: 048
     Dates: start: 20110808, end: 20110808

REACTIONS (9)
  - HEART RATE INCREASED [None]
  - DISTURBANCE IN ATTENTION [None]
  - DEHYDRATION [None]
  - LYMPHOPENIA [None]
  - DIARRHOEA [None]
  - DYSPEPSIA [None]
  - FALL [None]
  - GENERAL PHYSICAL HEALTH DETERIORATION [None]
  - BLOOD CREATININE INCREASED [None]
